FAERS Safety Report 13048176 (Version 1)
Quarter: 2016Q4

REPORT INFORMATION
  Report Type: Spontaneous
  Country: US (occurrence: US)
  Receive Date: 20161220
  Receipt Date: 20161220
  Transmission Date: 20170207
  Serious: Yes (Other)
  Sender: FDA-Public Use
  Company Number: None

PATIENT
  Age: 74 Year
  Sex: Female
  Weight: 56.25 kg

DRUGS (5)
  1. PROBIOTICS [Concomitant]
     Active Substance: PROBIOTICS NOS
  2. CODEINE [Concomitant]
     Active Substance: CODEINE
  3. ESTRADIOL 2 MG TABS [Suspect]
     Active Substance: ESTRADIOL
     Indication: ORAL HERPES
     Dosage: ?          QUANTITY:1 TABLET(S);?
     Route: 048
     Dates: start: 20161109
  4. TESTOSTERONE. [Concomitant]
     Active Substance: TESTOSTERONE
  5. ESTRIOL [Concomitant]
     Active Substance: ESTRIOL

REACTIONS (3)
  - Product substitution issue [None]
  - Product formulation issue [None]
  - Hysterectomy [None]

NARRATIVE: CASE EVENT DATE: 20161111
